FAERS Safety Report 7989008-7 (Version None)
Quarter: 2011Q4

REPORT INFORMATION
  Report Type: 
  Country: None (occurrence: None)
  Receive Date: 20111215
  Receipt Date: 20111215
  Transmission Date: 20120403
  Serious: Yes (Life-Threatening, Hospitalization, Disabling)
  Sender: FDA-Public Use
  Company Number: None

PATIENT
  Age: 62 Year
  Sex: Male
  Weight: 71 kg

DRUGS (2)
  1. HEPARIN [Suspect]
     Dosage: 5000 UNITS PRN SQ
     Route: 058
     Dates: start: 20111203, end: 20111205
  2. HEPARIN SODIUM 1,000 UNITS IN SODIUM CHLORIDE 0.9% [Suspect]
     Indication: THROMBOSIS PROPHYLAXIS
     Dosage: PER HOUR IV
     Route: 042
     Dates: start: 20111203, end: 20111205

REACTIONS (6)
  - MULTI-ORGAN FAILURE [None]
  - THROMBOSIS IN DEVICE [None]
  - HEPARIN-INDUCED THROMBOCYTOPENIA [None]
  - EMBOLIC STROKE [None]
  - TRANSIENT ISCHAEMIC ATTACK [None]
  - MEDICAL DEVICE COMPLICATION [None]
